FAERS Safety Report 13472322 (Version 1)
Quarter: 2017Q2

REPORT INFORMATION
  Report Type: Spontaneous
  Country: US (occurrence: US)
  Receive Date: 20170424
  Receipt Date: 20170424
  Transmission Date: 20170830
  Serious: Yes (Other)
  Sender: FDA-Public Use
  Company Number: None

PATIENT
  Age: 14 Year
  Sex: Male

DRUGS (3)
  1. AMOXICILLIN. [Concomitant]
     Active Substance: AMOXICILLIN
  2. ONDANSETRON [Concomitant]
     Active Substance: ONDANSETRON
  3. OSELTAMIVIR 75 MG CAP ALV [Suspect]
     Active Substance: OSELTAMIVIR
     Indication: INFLUENZA
     Dosage: DOSAGE - ONE DOSE
     Dates: start: 20170209

REACTIONS (2)
  - Somnambulism [None]
  - Parasomnia [None]

NARRATIVE: CASE EVENT DATE: 20170209
